FAERS Safety Report 4444190-3 (Version None)
Quarter: 2004Q3

REPORT INFORMATION
  Report Type: 
  Country: None (occurrence: None)
  Receive Date: 20040908
  Receipt Date: 20040810
  Transmission Date: 20050211
  Serious: Yes (Life-Threatening, Hospitalization)
  Sender: FDA-Public Use
  Company Number: US-MERCK-0408USA01009

PATIENT
  Age: 74 Year
  Sex: Female

DRUGS (14)
  1. LORTAB [Concomitant]
     Route: 065
  2. COMBIVENT [Concomitant]
     Route: 065
  3. ASPIRIN [Concomitant]
     Route: 065
  4. COREG [Concomitant]
     Route: 065
  5. LASIX [Concomitant]
     Route: 065
  6. NEURONTIN [Concomitant]
     Route: 065
  7. INSULIN [Concomitant]
     Route: 065
  8. GLUCOPHAGE [Concomitant]
     Route: 065
  9. NITROGLYCERIN [Concomitant]
     Route: 065
  10. BENICAR [Concomitant]
     Route: 065
  11. OXYGEN [Concomitant]
     Route: 065
  12. VIOXX [Suspect]
     Route: 048
     Dates: start: 20010101, end: 20020101
  13. VIOXX [Suspect]
     Route: 048
     Dates: start: 20040601, end: 20040708
  14. AZMACORT [Concomitant]
     Route: 065

REACTIONS (8)
  - BLOOD PRESSURE INCREASED [None]
  - CARDIAC FAILURE CONGESTIVE [None]
  - CONDITION AGGRAVATED [None]
  - HYPERCALCAEMIA [None]
  - RENAL FAILURE [None]
  - SEPSIS [None]
  - TREATMENT NONCOMPLIANCE [None]
  - WEIGHT INCREASED [None]
